FAERS Safety Report 23294774 (Version 5)
Quarter: 2024Q2

REPORT INFORMATION
  Report Type: Report from Study
  Country: PT (occurrence: CZ)
  Receive Date: 20231213
  Receipt Date: 20240405
  Transmission Date: 20240716
  Serious: Yes (Hospitalization, Other)
  Sender: FDA-Public Use
  Company Number: CZ-BIAL-BIAL-15777

PATIENT

DRUGS (5)
  1. ESLICARBAZEPINE ACETATE [Suspect]
     Active Substance: ESLICARBAZEPINE ACETATE
     Indication: Partial seizures
     Dosage: 800 MG (ONCE AT NIGHT) AND 400 MG (ONCE IN THE MORNING)
     Route: 048
     Dates: end: 20231104
  2. ZONEGRAN [Concomitant]
     Active Substance: ZONISAMIDE
     Indication: Partial seizures
     Dosage: 100 MILLIGRAM, BID
     Route: 048
  3. ZONEGRAN [Concomitant]
     Active Substance: ZONISAMIDE
     Dosage: 100 MILLIGRAM, BID
     Route: 048
  4. TRELEMA [Concomitant]
     Indication: Partial seizures
     Dosage: 200 MILLIGRAM, BID (ONE TABLET IN THE MORNING AND ONE TABLET AT NIGHT)
     Route: 048
  5. TRELEMA [Concomitant]
     Dosage: 200 MILLIGRAM, BID (ONE TABLET IN THE MORNING AND ONE TABLET AT NIGHT)
     Route: 048

REACTIONS (3)
  - Epilepsy [Recovered/Resolved]
  - Hyponatraemia [Recovered/Resolved]
  - Inappropriate schedule of product administration [Recovered/Resolved]

NARRATIVE: CASE EVENT DATE: 20170501
